FAERS Safety Report 17847790 (Version 1)
Quarter: 2020Q2

REPORT INFORMATION
  Report Type: Report from Study
  Country: US (occurrence: US)
  Receive Date: 20200601
  Receipt Date: 20200601
  Transmission Date: 20200714
  Serious: Yes (Death, Hospitalization)
  Sender: FDA-Public Use
  Company Number: US-ACTELION-A-US2018-171054

PATIENT
  Age: 53 Year
  Sex: Male

DRUGS (2)
  1. DOXYCYCLINE. [Suspect]
     Active Substance: DOXYCYCLINE
     Indication: HAEMOPTYSIS
     Dosage: UNK
     Route: 065
  2. OPSUMIT [Suspect]
     Active Substance: MACITENTAN
     Indication: PULMONARY ARTERIAL HYPERTENSION
     Dosage: 10 MG, QD
     Route: 048
     Dates: start: 20180103

REACTIONS (12)
  - Haemoptysis [Not Recovered/Not Resolved]
  - Herpes zoster [Unknown]
  - Malaise [Not Recovered/Not Resolved]
  - Pain [Unknown]
  - Death [Fatal]
  - Oxygen saturation decreased [Not Recovered/Not Resolved]
  - Infection [Unknown]
  - Headache [Unknown]
  - Chest pain [Unknown]
  - Product dose omission [Unknown]
  - Dyspnoea [Recovered/Resolved]
  - Osteoporosis [Unknown]

NARRATIVE: CASE EVENT DATE: 202001
